FAERS Safety Report 10056865 (Version 1)
Quarter: 2014Q2

REPORT INFORMATION
  Report Type: Spontaneous
  Country: US (occurrence: US)
  Receive Date: 20140403
  Receipt Date: 20140403
  Transmission Date: 20141212
  Serious: Yes (Other)
  Sender: FDA-Public Use
  Company Number: US-TEVA-472263USA

PATIENT
  Age: 32 Year
  Sex: Female

DRUGS (1)
  1. PROAIR HFA [Suspect]
     Dates: start: 201312

REACTIONS (4)
  - Lung infection [Unknown]
  - Asthma [Unknown]
  - Drug ineffective [Unknown]
  - Device malfunction [Unknown]
